FAERS Safety Report 5297288-4 (Version None)
Quarter: 2007Q2

REPORT INFORMATION
  Report Type: 
  Country: None (occurrence: None)
  Receive Date: 20070416
  Receipt Date: 20070411
  Transmission Date: 20071010
  Serious: Yes (Other)
  Sender: FDA-Public Use
  Company Number: FRWYE640813FEB07

PATIENT
  Sex: Male
  Weight: 75 kg

DRUGS (3)
  1. EFFEXOR XR [Suspect]
     Indication: DEPRESSION
     Route: 048
     Dates: start: 20070201, end: 20070204
  2. TAREG [Concomitant]
     Indication: HYPERTENSION
     Route: 048
  3. MODOPAR [Concomitant]
     Indication: PARKINSON'S DISEASE
     Route: 048
     Dates: start: 19980101

REACTIONS (3)
  - CONDITION AGGRAVATED [None]
  - FATIGUE [None]
  - PARKINSON'S DISEASE [None]
